FAERS Safety Report 16045778 (Version 2)
Quarter: 2019Q2

REPORT INFORMATION
  Report Type: Spontaneous
  Country: US (occurrence: US)
  Receive Date: 20190307
  Receipt Date: 20190502
  Transmission Date: 20190711
  Serious: No
  Sender: FDA-Public Use
  Company Number: US-BRISTOL-MYERS SQUIBB COMPANY-BMS-2019-017822

PATIENT
  Sex: Female

DRUGS (1)
  1. KENALOG-40 [Suspect]
     Active Substance: TRIAMCINOLONE ACETONIDE
     Indication: INFLAMMATION
     Dosage: UNAVAILABLE
     Route: 065

REACTIONS (4)
  - Injection site scar [Unknown]
  - Pain [Unknown]
  - Injection site indentation [Unknown]
  - Injection site reaction [Unknown]
